FAERS Safety Report 11032608 (Version 1)
Quarter: 2015Q2

REPORT INFORMATION
  Report Type: Spontaneous
  Country: BR (occurrence: BR)
  Receive Date: 20150415
  Receipt Date: 20150415
  Transmission Date: 20150821
  Serious: Yes (Other)
  Sender: FDA-Public Use
  Company Number: BR-ASTRAZENECA-2015SE31399

PATIENT
  Age: 49 Year
  Sex: Female
  Weight: 91 kg

DRUGS (7)
  1. CANDESARTAN HCTZ [Suspect]
     Active Substance: CANDESARTAN CILEXETIL\HYDROCHLOROTHIAZIDE
     Indication: HYPERTENSION
     Dosage: 8/12,5 MG
     Route: 065
     Dates: start: 1999
  2. PITAVASTATIN [Concomitant]
     Active Substance: PITAVASTATIN
     Indication: DYSLIPIDAEMIA
     Route: 065
  3. FORXIGA [Suspect]
     Active Substance: DAPAGLIFLOZIN
     Indication: TYPE 2 DIABETES MELLITUS
     Route: 048
  4. METFORMIN [Suspect]
     Active Substance: METFORMIN HYDROCHLORIDE
     Indication: TYPE 2 DIABETES MELLITUS
     Route: 065
     Dates: start: 201407
  5. INSULIN LEVEMIR [Concomitant]
     Indication: TYPE 2 DIABETES MELLITUS
     Route: 058
     Dates: start: 201408
  6. METFORMIN [Suspect]
     Active Substance: METFORMIN HYDROCHLORIDE
     Indication: TYPE 2 DIABETES MELLITUS
     Route: 065
     Dates: start: 2005, end: 201407
  7. INSULIN LEVEMIR [Concomitant]
     Indication: TYPE 2 DIABETES MELLITUS
     Route: 058
     Dates: start: 2005, end: 20140821

REACTIONS (4)
  - Diabetes mellitus [Recovered/Resolved]
  - Hyperglycaemia [Recovered/Resolved]
  - Goitre [Recovered/Resolved]
  - Hypoglycaemia [Recovered/Resolved]

NARRATIVE: CASE EVENT DATE: 2005
